FAERS Safety Report 6221021-2 (Version None)
Quarter: 2009Q2

REPORT INFORMATION
  Report Type: 
  Country: None (occurrence: None)
  Receive Date: 20090610
  Receipt Date: 20090527
  Transmission Date: 20091009
  Serious: Yes (Hospitalization)
  Sender: FDA-Public Use
  Company Number: A0742052A

PATIENT
  Age: 50 Year
  Sex: Female
  Weight: 102.3 kg

DRUGS (16)
  1. AVANDIA [Suspect]
     Dosage: 4MG PER DAY
     Route: 048
     Dates: start: 20050119, end: 20061101
  2. WARFARIN SODIUM [Concomitant]
  3. LISINOPRIL [Concomitant]
  4. VITAMIN A [Concomitant]
  5. VITAMIN B COMPLEX CAP [Concomitant]
  6. ASCORBIC ACID [Concomitant]
  7. VICODIN [Concomitant]
  8. SOMA [Concomitant]
  9. CITALOPRAM [Concomitant]
     Dates: start: 20040520, end: 20070912
  10. NITROGLYCERIN [Concomitant]
     Dates: start: 20061010
  11. PRAVASTATIN [Concomitant]
     Dates: start: 20061010
  12. FUROSEMIDE [Concomitant]
     Dates: start: 20061010, end: 20070922
  13. PREDNISONE [Concomitant]
     Dates: start: 20050121
  14. TOPROL-XL [Concomitant]
     Dates: start: 20050121, end: 20070802
  15. GLUCOPHAGE [Concomitant]
     Dates: start: 20050208, end: 20060515
  16. METFORMIN [Concomitant]
     Dates: start: 20050208, end: 20070817

REACTIONS (7)
  - ATRIAL FIBRILLATION [None]
  - CARDIAC FAILURE CONGESTIVE [None]
  - CORONARY ARTERY DISEASE [None]
  - HYPERLIPIDAEMIA [None]
  - ISCHAEMIA [None]
  - MYOCARDIAL INFARCTION [None]
  - PAIN [None]
